FAERS Safety Report 6346181-4 (Version None)
Quarter: 2009Q3

REPORT INFORMATION
  Report Type: 
  Country: None (occurrence: None)
  Receive Date: 20090821
  Receipt Date: 20090528
  Transmission Date: 20100115
  Serious: No
  Sender: FDA-Public Use
  Company Number: 8047138

PATIENT
  Age: 34 Year
  Sex: Female
  Weight: 70.3 kg

DRUGS (4)
  1. CIMZIA [Suspect]
     Indication: CROHN'S DISEASE
     Dosage: 400 MG SC
     Route: 058
     Dates: start: 20090420
  2. ASACOL [Concomitant]
  3. PREDNISONE [Concomitant]
  4. PREDNISONE TAB [Concomitant]

REACTIONS (1)
  - RASH MACULAR [None]
